FAERS Safety Report 7652882-8 (Version None)
Quarter: 2011Q3

REPORT INFORMATION
  Report Type: 
  Country: None (occurrence: None)
  Receive Date: 20110728
  Receipt Date: 20110714
  Transmission Date: 20111222
  Serious: Yes (Other)
  Sender: FDA-Public Use
  Company Number: 1000022403

PATIENT
  Sex: Female

DRUGS (5)
  1. CITALOPRAM HYDROBROMIDE [Suspect]
     Indication: DEPRESSION
     Dosage: 20 MG, ORAL, 20 MG ORAL
     Route: 048
     Dates: start: 20101101, end: 20110117
  2. CITALOPRAM HYDROBROMIDE [Suspect]
     Indication: ANXIETY
     Dosage: 20 MG, ORAL, 20 MG ORAL
     Route: 048
     Dates: start: 20101101, end: 20110117
  3. PREMPAK-C (ESTROGENS CONJUGATED, NORGESTREL) [Concomitant]
  4. CITALOPRAM HYDROBROMIDE [Suspect]
     Indication: ANXIETY
     Dosage: 20 MG, ORAL
     Route: 048
     Dates: start: 20110117, end: 20110101
  5. CITALOPRAM HYDROBROMIDE [Suspect]
     Indication: DEPRESSION
     Dosage: 20 MG, ORAL
     Route: 048
     Dates: start: 20110117, end: 20110101

REACTIONS (9)
  - FEELING DRUNK [None]
  - DEPRESSION [None]
  - SUICIDAL IDEATION [None]
  - PRODUCT SUBSTITUTION ISSUE [None]
  - NAUSEA [None]
  - DRUG INEFFECTIVE [None]
  - FEELING ABNORMAL [None]
  - MALAISE [None]
  - CONDITION AGGRAVATED [None]
